FAERS Safety Report 6939096-1 (Version None)
Quarter: 2010Q3

REPORT INFORMATION
  Report Type: 
  Country: None (occurrence: None)
  Receive Date: 20100824
  Receipt Date: 20100813
  Transmission Date: 20110219
  Serious: Yes (Death, Hospitalization)
  Sender: FDA-Public Use
  Company Number: MX-JNJFOC-20100805252

PATIENT
  Age: 58 Year
  Sex: Male

DRUGS (1)
  1. REOPRO [Suspect]
     Indication: ANGINA UNSTABLE
     Route: 042

REACTIONS (3)
  - MYOCARDIAL INFARCTION [None]
  - PLATELET COUNT DECREASED [None]
  - RESPIRATORY DISORDER [None]
